FAERS Safety Report 6439427-5 (Version None)
Quarter: 2009Q4

REPORT INFORMATION
  Report Type: 
  Country: None (occurrence: None)
  Receive Date: 20091113
  Receipt Date: 20090608
  Transmission Date: 20100525
  Serious: No
  Sender: FDA-Public Use
  Company Number: US-BAYER-200915265NA

PATIENT

DRUGS (2)
  1. ULTRAVIST 300 [Suspect]
     Indication: DRUG USE FOR UNKNOWN INDICATION
     Dosage: POWER INJECTOR USED
     Dates: start: 20080513, end: 20080513
  2. E-Z-EM READI-CAT 2 [Concomitant]
     Route: 048

REACTIONS (1)
  - NAUSEA [None]
